FAERS Safety Report 13373037 (Version 1)
Quarter: 2017Q1

REPORT INFORMATION
  Report Type: Spontaneous
  Country: GB (occurrence: GB)
  Receive Date: 20170327
  Receipt Date: 20170327
  Transmission Date: 20170429
  Serious: Yes (Other)
  Sender: FDA-Public Use
  Company Number: GB-009507513-1703GBR011164

PATIENT
  Sex: Female

DRUGS (10)
  1. PROLIA [Suspect]
     Active Substance: DENOSUMAB
     Indication: OSTEOPOROSIS
     Dosage: SECOND INJECTION WAS SUPPOSED TO BE ON 14-FEB-2017 BUT THIS WAS CANCELLED
     Dates: start: 201608
  2. BISOPROLOL [Suspect]
     Active Substance: BISOPROLOL
     Indication: HYPERTENSION
     Dosage: ALSO RECEIVED 1.25 MG SINCE NOV 2016
     Dates: start: 201502
  3. ADCAL-D3 [Suspect]
     Active Substance: CALCIUM CARBONATE\CHOLECALCIFEROL
     Indication: OSTEOPOROSIS
     Dates: start: 201402
  4. AMITRIPTYLINE HYDROCHLORIDE. [Suspect]
     Active Substance: AMITRIPTYLINE HYDROCHLORIDE
     Indication: PRODUCT USED FOR UNKNOWN INDICATION
     Dosage: TAKEN 2 X 50 MGONLY TAKE ON ODD OCCASIONS
  5. AMLODIPINE [Suspect]
     Active Substance: AMLODIPINE BESYLATE
     Indication: HYPERTENSION
     Dosage: 5 MG, UNK
     Dates: start: 201307
  6. OXPRENOLOL HYDROCHLORIDE [Suspect]
     Active Substance: OXPRENOLOL HYDROCHLORIDE
     Indication: BLOOD PRESSURE INCREASED
     Dosage: 160 MG, UNK
  7. ARIPIPRAZOLE. [Suspect]
     Active Substance: ARIPIPRAZOLE
     Indication: PRODUCT USED FOR UNKNOWN INDICATION
     Dosage: INCREASED TO 5 MG IN JAN-2017
     Dates: start: 201612
  8. DOXAZOSIN [Suspect]
     Active Substance: DOXAZOSIN\DOXAZOSIN MESYLATE
     Indication: HYPERTENSION
     Dosage: TAKING SINCE 1990^S
     Dates: start: 1990
  9. ALENDRONATE SODIUM. [Suspect]
     Active Substance: ALENDRONATE SODIUM
     Indication: OSTEOPOROSIS
     Dates: start: 201402, end: 201608
  10. LANSOPRAZOLE. [Suspect]
     Active Substance: LANSOPRAZOLE
     Indication: PRODUCT USED FOR UNKNOWN INDICATION
     Dosage: ONLY TAKE ON ODD OCCASIONS

REACTIONS (14)
  - Pain [Unknown]
  - Muscle spasms [Unknown]
  - Erythema [Unknown]
  - Abdominal discomfort [Unknown]
  - Burning sensation [Unknown]
  - Headache [Unknown]
  - Influenza like illness [Unknown]
  - Chest discomfort [Unknown]
  - Rhinorrhoea [Unknown]
  - Urinary tract infection [Unknown]
  - Myalgia [Unknown]
  - Constipation [Unknown]
  - Arthralgia [Unknown]
  - Bone pain [Unknown]
